FAERS Safety Report 5752013-5 (Version None)
Quarter: 2008Q2

REPORT INFORMATION
  Report Type: 
  Country: None (occurrence: None)
  Receive Date: 20080529
  Receipt Date: 20080521
  Transmission Date: 20081010
  Serious: Yes (Hospitalization)
  Sender: FDA-Public Use
  Company Number: BE-WYE-H01574507

PATIENT
  Sex: Male
  Weight: 63.1 kg

DRUGS (10)
  1. NEORAL [Suspect]
     Indication: PROPHYLAXIS AGAINST TRANSPLANT REJECTION
     Dosage: 150, 2/DAY
     Route: 048
  2. VALCYTE [Suspect]
     Route: 048
  3. AMLOR [Concomitant]
     Dosage: 10 MG, FREQUENCYUNSPECIFIED
     Route: 048
  4. CELLCEPT [Concomitant]
     Indication: PROPHYLAXIS AGAINST TRANSPLANT REJECTION
     Route: 048
  5. ZANTAC [Concomitant]
     Route: 048
  6. LASIX [Suspect]
     Route: 048
     Dates: end: 20071027
  7. ZOCOR [Concomitant]
     Route: 048
  8. KAYEXALATE [Concomitant]
     Dosage: 1 PER DAY
     Route: 048
  9. MEDROL [Concomitant]
     Route: 048
  10. EMCONCOR [Concomitant]
     Route: 048

REACTIONS (1)
  - RENAL FAILURE [None]
